FAERS Safety Report 6033236-7 (Version None)
Quarter: 2009Q1

REPORT INFORMATION
  Report Type: 
  Country: None (occurrence: None)
  Receive Date: 20090109
  Receipt Date: 20090106
  Transmission Date: 20090719
  Serious: Yes (Death, Life-Threatening)
  Sender: FDA-Public Use
  Company Number: GB-WYE-G02582608

PATIENT
  Sex: Male

DRUGS (17)
  1. GEMTUZUMAB OZOGAMICIN [Suspect]
     Indication: MYELODYSPLASTIC SYNDROME
     Dosage: 5 MG (3MG/M2) FREQUENCY UNKNOWN
     Dates: start: 20081112, end: 20081113
  2. ALU-CAP [Concomitant]
     Route: 048
  3. FILGRASTIM [Concomitant]
     Route: 058
  4. ALFACALCIDOL [Concomitant]
     Route: 048
  5. METOCLOPRAMIDE [Concomitant]
     Route: 048
  6. LANSOPRAZOLE [Concomitant]
     Route: 048
  7. TAZOCIN [Concomitant]
     Route: 042
  8. METRONIDAZOLE HCL [Concomitant]
     Route: 042
  9. FLUCONAZOLE [Concomitant]
     Route: 042
  10. TEICOPLANIN [Concomitant]
     Route: 042
  11. MEROPENEM [Concomitant]
     Route: 042
  12. ACETAMINOPHEN [Concomitant]
     Dosage: 1 MG AS NEEDED
     Route: 048
  13. ACETAMINOPHEN [Concomitant]
     Dosage: 1 MG AS NEEDED
     Route: 042
  14. HYDROCORTISONE [Concomitant]
     Dosage: 100 MG AS NEEDED
     Route: 042
  15. CHLORPHENIRAMINE MALEATE [Concomitant]
     Dosage: 10 MG AS NEEDED
     Route: 042
  16. ACETAMINOPHEN W/ CODEINE [Concomitant]
     Indication: PAIN
     Dosage: 50/500 (UNITS UNKNOWN) AS NEEDED
     Route: 048
  17. DAUNORUBICIN HCL [Suspect]
     Dosage: 35 MG (20MG/M2) FREQUENCY UNKNOWN
     Dates: start: 20081112, end: 20081113

REACTIONS (7)
  - CARDIAC FAILURE [None]
  - CEREBRAL HAEMORRHAGE [None]
  - DISEASE PROGRESSION [None]
  - HYPOTENSION [None]
  - RENAL FAILURE ACUTE [None]
  - SEPSIS [None]
  - TUMOUR LYSIS SYNDROME [None]
